FAERS Safety Report 7105145-3 (Version None)
Quarter: 2010Q4

REPORT INFORMATION
  Report Type: 
  Country: None (occurrence: None)
  Receive Date: 20101116
  Receipt Date: 20101110
  Transmission Date: 20110411
  Serious: Yes (Hospitalization)
  Sender: FDA-Public Use
  Company Number: US-SANOFI-AVENTIS-2010SA068615

PATIENT
  Age: 67 Year
  Sex: Male
  Weight: 109.1 kg

DRUGS (20)
  1. JEVTANA KIT [Suspect]
     Indication: PROSTATE CANCER METASTATIC
     Route: 051
     Dates: start: 20100721, end: 20100721
  2. JEVTANA KIT [Suspect]
     Route: 051
     Dates: start: 20100811, end: 20100811
  3. JEVTANA KIT [Suspect]
     Route: 051
     Dates: start: 20100901, end: 20100901
  4. JEVTANA KIT [Suspect]
     Route: 051
     Dates: start: 20101109, end: 20101109
  5. ALOXI [Concomitant]
     Indication: PREMEDICATION
  6. DEXAMETHASONE [Concomitant]
     Indication: PREMEDICATION
  7. ZANTAC [Concomitant]
     Indication: PREMEDICATION
  8. DIPHENHYDRAMINE HYDROCHLORIDE [Concomitant]
     Indication: PREMEDICATION
  9. MOTRIN [Concomitant]
  10. ASPIRIN [Concomitant]
  11. IRON [Concomitant]
  12. PROSCAR [Concomitant]
  13. GLIPIZIDE [Concomitant]
  14. VICODIN [Concomitant]
  15. METOCLOPRAMIDE [Concomitant]
  16. PRILOSEC [Concomitant]
  17. ASCORBIC ACID [Concomitant]
  18. VITAMIN D [Concomitant]
  19. ZOMETA [Concomitant]
  20. ALL OTHER THERAPEUTIC PRODUCTS [Concomitant]

REACTIONS (1)
  - ACUTE PULMONARY OEDEMA [None]
